FAERS Safety Report 4772945-4 (Version None)
Quarter: 2005Q3

REPORT INFORMATION
  Report Type: 
  Country: None (occurrence: None)
  Receive Date: 20050916
  Receipt Date: 20050908
  Transmission Date: 20060218
  Serious: Yes (Hospitalization)
  Sender: FDA-Public Use
  Company Number: GBWYE964208SEP05

PATIENT
  Age: 13 Year
  Sex: Female

DRUGS (1)
  1. EFFEXOR XR [Suspect]
     Dosage: 900 MG 1X PER 1 DAY ORAL
     Route: 048
     Dates: start: 20050907, end: 20050907

REACTIONS (8)
  - DIZZINESS [None]
  - HEADACHE [None]
  - HYPERTENSION [None]
  - MEDICATION ERROR [None]
  - NAUSEA [None]
  - OVERDOSE [None]
  - TACHYCARDIA [None]
  - VISION BLURRED [None]
